FAERS Safety Report 17450107 (Version 36)
Quarter: 2024Q1

REPORT INFORMATION
  Report Type: Spontaneous
  Country: CA (occurrence: CA)
  Receive Date: 20200224
  Receipt Date: 20240117
  Transmission Date: 20240410
  Serious: Yes (Life-Threatening, Hospitalization, Disabling, Other)
  Sender: FDA-Public Use
  Company Number: CA-BIOVITRUM-2020CA0815

PATIENT
  Age: 4 Year
  Sex: Female
  Weight: 64 kg

DRUGS (192)
  1. ANAKINRA [Suspect]
     Active Substance: ANAKINRA
     Indication: Juvenile idiopathic arthritis
     Dosage: 1 EVERY 1 DAY
     Route: 058
  2. ANAKINRA [Suspect]
     Active Substance: ANAKINRA
     Indication: Rheumatoid arthritis
     Dosage: ONCE WEEK
     Route: 058
  3. ANAKINRA [Suspect]
     Active Substance: ANAKINRA
     Dosage: 12.5 MG, ONCE A WEEK
     Route: 065
  4. ANAKINRA [Suspect]
     Active Substance: ANAKINRA
     Dosage: 1 EVERY 1 DAY
     Route: 058
  5. ANAKINRA [Suspect]
     Active Substance: ANAKINRA
     Dosage: DAILY
     Route: 058
  6. ANAKINRA [Suspect]
     Active Substance: ANAKINRA
     Dosage: 1 EVERY 1 DAY
     Route: 065
  7. ANAKINRA [Suspect]
     Active Substance: ANAKINRA
     Route: 065
  8. ANAKINRA [Suspect]
     Active Substance: ANAKINRA
     Dosage: 1 EVERY 1 DAY
     Route: 059
  9. ANAKINRA [Suspect]
     Active Substance: ANAKINRA
     Dosage: EVERY 1 DAY
     Route: 058
  10. ANAKINRA [Suspect]
     Active Substance: ANAKINRA
     Dosage: EVERY 1 DAY
     Route: 059
  11. ACTEMRA [Suspect]
     Active Substance: TOCILIZUMAB
     Indication: Juvenile idiopathic arthritis
     Dosage: 1 EVERY WEEK
     Route: 042
  12. ACTEMRA [Suspect]
     Active Substance: TOCILIZUMAB
     Indication: Still^s disease
     Dosage: 1 EVERY 2 WEEK
     Route: 042
  13. ACTEMRA [Suspect]
     Active Substance: TOCILIZUMAB
     Indication: Rheumatoid arthritis
     Dosage: 2 EVERY 1 WEEK
     Route: 041
  14. ACTEMRA [Suspect]
     Active Substance: TOCILIZUMAB
     Dosage: 1 EVERY 2 WEEK
     Route: 042
  15. ACTEMRA [Suspect]
     Active Substance: TOCILIZUMAB
     Dosage: 280 MG, ONE VERY 1 DAYS
     Route: 042
  16. ACTEMRA [Suspect]
     Active Substance: TOCILIZUMAB
     Dosage: CYCLIC
     Route: 042
  17. ACTEMRA [Suspect]
     Active Substance: TOCILIZUMAB
     Dosage: NOT SPECIFIED, 2 EVERY ONE WEEK
     Route: 042
  18. ACTEMRA [Suspect]
     Active Substance: TOCILIZUMAB
     Route: 041
  19. ACTEMRA [Suspect]
     Active Substance: TOCILIZUMAB
     Dosage: 1 EVERY 1 DAY
     Route: 041
  20. ACTEMRA [Suspect]
     Active Substance: TOCILIZUMAB
     Dosage: 2 EVERY 1 DAY
     Route: 065
  21. ACTEMRA [Suspect]
     Active Substance: TOCILIZUMAB
     Dosage: 1 EVERY 1 DAY
     Route: 065
  22. ADALIMUMAB [Suspect]
     Active Substance: ADALIMUMAB\ISOPROPYL ALCOHOL
     Indication: Juvenile idiopathic arthritis
     Route: 058
  23. ADALIMUMAB [Suspect]
     Active Substance: ADALIMUMAB\ISOPROPYL ALCOHOL
     Indication: Rheumatoid arthritis
     Route: 058
  24. ADALIMUMAB [Suspect]
     Active Substance: ADALIMUMAB\ISOPROPYL ALCOHOL
     Route: 059
  25. NAPROXEN [Suspect]
     Active Substance: NAPROXEN
     Indication: Juvenile idiopathic arthritis
     Route: 065
  26. NAPROXEN [Suspect]
     Active Substance: NAPROXEN
     Indication: Rheumatoid arthritis
     Route: 065
  27. ENBREL [Suspect]
     Active Substance: ETANERCEPT
     Indication: Juvenile idiopathic arthritis
     Dosage: 1 EVERY 1 WEEK
     Route: 065
  28. ENBREL [Suspect]
     Active Substance: ETANERCEPT
     Indication: Rheumatoid arthritis
     Route: 058
  29. ENBREL [Suspect]
     Active Substance: ETANERCEPT
     Dosage: 1 EVERY 1 WEEK
     Route: 058
  30. ENBREL [Suspect]
     Active Substance: ETANERCEPT
     Dosage: 12.5, 4 TIMES, EVERY 1 WEEK
     Route: 057
  31. ENBREL [Suspect]
     Active Substance: ETANERCEPT
     Dosage: 5 MILLIGRAMS TWICE IN A DAY FOR 10 YEARS, ONCE
     Route: 058
  32. ENBREL [Suspect]
     Active Substance: ETANERCEPT
     Dosage: 1 EVERY 1 WEEK
     Route: 058
  33. ENBREL [Suspect]
     Active Substance: ETANERCEPT
     Dosage: 25 MG
     Route: 065
  34. ENBREL [Suspect]
     Active Substance: ETANERCEPT
     Dosage: 25 MG
     Route: 065
  35. ENBREL [Suspect]
     Active Substance: ETANERCEPT
     Dosage: ONCE A WEEK
     Route: 058
  36. ENBREL [Suspect]
     Active Substance: ETANERCEPT
     Dosage: ONCE A WEEK
     Route: 058
  37. ENBREL [Suspect]
     Active Substance: ETANERCEPT
     Dosage: 4 EVERY 1 WEEK
     Route: 058
  38. ENBREL [Suspect]
     Active Substance: ETANERCEPT
     Dosage: 1 EVERY 1 WEEK
     Route: 058
  39. ENBREL [Suspect]
     Active Substance: ETANERCEPT
     Dosage: 1 EVERY ONE DAY
     Route: 058
  40. ENBREL [Suspect]
     Active Substance: ETANERCEPT
     Dosage: CYCLICAL
     Route: 058
  41. ENBREL [Suspect]
     Active Substance: ETANERCEPT
     Dosage: 2 EVERY 1 DAYS
     Route: 058
  42. ENBREL [Suspect]
     Active Substance: ETANERCEPT
     Dosage: 1 EVERY 1 WEEKS
     Route: 065
  43. ENBREL [Suspect]
     Active Substance: ETANERCEPT
     Dosage: CYCLICAL
     Route: 058
  44. ENBREL [Suspect]
     Active Substance: ETANERCEPT
     Dosage: 1 EVERY 1 WEEK
     Route: 058
  45. ENBREL [Suspect]
     Active Substance: ETANERCEPT
     Dosage: 1 EVERY 1 WEEK
     Route: 058
  46. ENBREL [Suspect]
     Active Substance: ETANERCEPT
     Route: 059
  47. ENBREL [Suspect]
     Active Substance: ETANERCEPT
     Route: 059
  48. ENBREL [Suspect]
     Active Substance: ETANERCEPT
     Route: 059
  49. ENBREL [Suspect]
     Active Substance: ETANERCEPT
     Dosage: 1 EVERY 1 DAY
     Route: 059
  50. ENBREL [Suspect]
     Active Substance: ETANERCEPT
     Route: 059
  51. ENBREL [Suspect]
     Active Substance: ETANERCEPT
     Dosage: 1 EVERY 1 DAYS
     Route: 059
  52. ENBREL [Suspect]
     Active Substance: ETANERCEPT
     Dosage: 2 EVERY 1 WEEK
     Route: 059
  53. HUMIRA [Suspect]
     Active Substance: ADALIMUMAB
     Indication: Juvenile idiopathic arthritis
     Dosage: 1 EVERY 1 DAY
     Route: 058
  54. HUMIRA [Suspect]
     Active Substance: ADALIMUMAB
     Indication: Rheumatoid arthritis
     Route: 058
  55. HUMIRA [Suspect]
     Active Substance: ADALIMUMAB
     Route: 058
  56. HUMIRA [Suspect]
     Active Substance: ADALIMUMAB
     Route: 059
  57. HYDROXYCHLOROQUINE SULFATE [Suspect]
     Active Substance: HYDROXYCHLOROQUINE SULFATE
     Indication: Juvenile idiopathic arthritis
     Dosage: DAILY, 1 EVERY 1 DAY
     Route: 048
  58. HYDROXYCHLOROQUINE SULFATE [Suspect]
     Active Substance: HYDROXYCHLOROQUINE SULFATE
     Indication: Rheumatoid arthritis
     Dosage: ONCE DAILY
     Route: 048
  59. HYDROXYCHLOROQUINE SULFATE [Suspect]
     Active Substance: HYDROXYCHLOROQUINE SULFATE
     Dosage: 5 DOSAGE FORMS ONCE IN EVERY 24 HOURS
     Route: 065
  60. HYDROXYCHLOROQUINE SULFATE [Suspect]
     Active Substance: HYDROXYCHLOROQUINE SULFATE
     Dosage: 24 HOURS DAILY
     Route: 048
  61. HYDROXYCHLOROQUINE SULFATE [Suspect]
     Active Substance: HYDROXYCHLOROQUINE SULFATE
     Dosage: 1 EVERY 1 DAY
     Route: 048
  62. INFLIXIMAB [Suspect]
     Active Substance: INFLIXIMAB
     Indication: Juvenile idiopathic arthritis
     Dosage: ONCE A WEEK
     Route: 042
  63. INFLIXIMAB [Suspect]
     Active Substance: INFLIXIMAB
     Indication: Rheumatoid arthritis
     Route: 042
  64. INFLIXIMAB [Suspect]
     Active Substance: INFLIXIMAB
     Dosage: ONCE A WEEK
     Route: 042
  65. INFLIXIMAB [Suspect]
     Active Substance: INFLIXIMAB
     Dosage: ONCE A 6 WEEK
     Route: 042
  66. INFLIXIMAB [Suspect]
     Active Substance: INFLIXIMAB
     Dosage: ONCE A WEEK
     Route: 042
  67. INFLIXIMAB [Suspect]
     Active Substance: INFLIXIMAB
     Dosage: ONCE A WEEK
     Route: 042
  68. INFLIXIMAB [Suspect]
     Active Substance: INFLIXIMAB
     Dosage: ONCE A WEEK
     Route: 042
  69. INFLIXIMAB [Suspect]
     Active Substance: INFLIXIMAB
     Route: 042
  70. INFLIXIMAB [Suspect]
     Active Substance: INFLIXIMAB
     Route: 042
  71. INFLIXIMAB [Suspect]
     Active Substance: INFLIXIMAB
     Route: 065
  72. INFLIXIMAB [Suspect]
     Active Substance: INFLIXIMAB
     Route: 042
  73. INFLIXIMAB [Suspect]
     Active Substance: INFLIXIMAB
     Dosage: 1 EVERY 1 WEEK
     Route: 065
  74. INFLIXIMAB [Suspect]
     Active Substance: INFLIXIMAB
     Route: 042
  75. INFLIXIMAB [Suspect]
     Active Substance: INFLIXIMAB
     Route: 041
  76. INFLIXIMAB [Suspect]
     Active Substance: INFLIXIMAB
     Route: 042
  77. INFLIXIMAB [Suspect]
     Active Substance: INFLIXIMAB
     Dosage: CYCLICAL
     Route: 042
  78. INFLIXIMAB [Suspect]
     Active Substance: INFLIXIMAB
     Route: 042
  79. INFLIXIMAB [Suspect]
     Active Substance: INFLIXIMAB
     Route: 041
  80. INFLIXIMAB [Suspect]
     Active Substance: INFLIXIMAB
     Route: 041
  81. METHOTREXATE [Suspect]
     Active Substance: METHOTREXATE
     Indication: Juvenile idiopathic arthritis
     Dosage: 15 MG/M2, ONCE A WEEK
     Route: 058
  82. METHOTREXATE [Suspect]
     Active Substance: METHOTREXATE
     Indication: Rheumatoid arthritis
     Dosage: 15 MG/M2 ONCE A WEEK, ONCE
     Route: 065
  83. METHOTREXATE [Suspect]
     Active Substance: METHOTREXATE
     Dosage: 15 MG/M2, 12 HOURS 2 TIME
     Route: 058
  84. METHOTREXATE [Suspect]
     Active Substance: METHOTREXATE
     Dosage: 2 EVERY 1 WEEK
     Route: 065
  85. METHOTREXATE [Suspect]
     Active Substance: METHOTREXATE
     Dosage: 15 MG/M2 2 WEEK
     Route: 058
  86. METHOTREXATE [Suspect]
     Active Substance: METHOTREXATE
     Route: 065
  87. METHOTREXATE [Suspect]
     Active Substance: METHOTREXATE
     Dosage: 1 EVERY 1 WEEK
     Route: 058
  88. METHOTREXATE [Suspect]
     Active Substance: METHOTREXATE
     Route: 058
  89. METHOTREXATE [Suspect]
     Active Substance: METHOTREXATE
     Dosage: 1 EVERY 1 WEEK
     Route: 058
  90. METHOTREXATE [Suspect]
     Active Substance: METHOTREXATE
     Dosage: 1 EVERY 1 WEEK
     Route: 058
  91. METHOTREXATE [Suspect]
     Active Substance: METHOTREXATE
     Dosage: 15 MG/M2, CYCLICAL
     Route: 058
  92. METHOTREXATE [Suspect]
     Active Substance: METHOTREXATE
     Route: 037
  93. METHOTREXATE [Suspect]
     Active Substance: METHOTREXATE
     Dosage: 1 EVERY 1 WEEK
     Route: 065
  94. METHOTREXATE [Suspect]
     Active Substance: METHOTREXATE
     Dosage: 1 EVERY 1 WEEK
     Route: 059
  95. METHOTREXATE [Suspect]
     Active Substance: METHOTREXATE
     Route: 029
  96. METHOTREXATE [Suspect]
     Active Substance: METHOTREXATE
     Route: 059
  97. METHOTREXATE [Suspect]
     Active Substance: METHOTREXATE
     Route: 059
  98. NAPROXEN SODIUM [Suspect]
     Active Substance: NAPROXEN\NAPROXEN SODIUM
     Indication: Juvenile idiopathic arthritis
     Route: 065
  99. NAPROXEN SODIUM [Suspect]
     Active Substance: NAPROXEN\NAPROXEN SODIUM
     Indication: Rheumatoid arthritis
     Route: 065
  100. ORENCIA [Suspect]
     Active Substance: ABATACEPT
     Indication: Juvenile idiopathic arthritis
     Dosage: ONCE A MONTH
     Route: 042
  101. ORENCIA [Suspect]
     Active Substance: ABATACEPT
     Indication: Rheumatoid arthritis
     Dosage: 1 EVERY 1 MONTH
     Route: 042
  102. ORENCIA [Suspect]
     Active Substance: ABATACEPT
     Dosage: ONCE A MONTH
     Route: 042
  103. ORENCIA [Suspect]
     Active Substance: ABATACEPT
     Dosage: ONCE A MONTH
     Route: 042
  104. ORENCIA [Suspect]
     Active Substance: ABATACEPT
     Dosage: 250 MG
     Route: 042
  105. ORENCIA [Suspect]
     Active Substance: ABATACEPT
     Dosage: 250 MG
     Route: 042
  106. ORENCIA [Suspect]
     Active Substance: ABATACEPT
     Dosage: 250 MG
     Route: 065
  107. ORENCIA [Suspect]
     Active Substance: ABATACEPT
     Dosage: 1 EVERY 1 MONTH
     Route: 065
  108. ORENCIA [Suspect]
     Active Substance: ABATACEPT
     Route: 042
  109. ORENCIA [Suspect]
     Active Substance: ABATACEPT
     Dosage: 1 EVERY 1 MONTH
     Route: 042
  110. ORENCIA [Suspect]
     Active Substance: ABATACEPT
     Dosage: 1 EVERY 1 MONTH
     Route: 042
  111. ORENCIA [Suspect]
     Active Substance: ABATACEPT
     Dosage: 1 EVERY 1 MONTH
     Route: 065
  112. ORENCIA [Suspect]
     Active Substance: ABATACEPT
     Dosage: 1 EVERY 1 MONTH
     Route: 065
  113. ORENCIA [Suspect]
     Active Substance: ABATACEPT
     Dosage: 1 EVERY 1 MONTH
     Route: 041
  114. ORENCIA [Suspect]
     Active Substance: ABATACEPT
     Route: 041
  115. ORENCIA [Suspect]
     Active Substance: ABATACEPT
     Route: 041
  116. ORENCIA [Suspect]
     Active Substance: ABATACEPT
     Route: 055
  117. PREDNISONE [Suspect]
     Active Substance: PREDNISONE
     Indication: Juvenile idiopathic arthritis
     Dosage: 1.3 MG ONCE A DAY, 2 TIMES
     Route: 048
  118. PREDNISONE [Suspect]
     Active Substance: PREDNISONE
     Indication: Rheumatoid arthritis
     Dosage: ONCE A DAY, 2 TIMES
     Route: 048
  119. PREDNISONE [Suspect]
     Active Substance: PREDNISONE
     Dosage: ONCE A DAY, 2 TIMES
     Route: 048
  120. PREDNISONE [Suspect]
     Active Substance: PREDNISONE
     Dosage: ONCE A DAY, 2 TIMES
     Route: 048
  121. PREDNISONE [Suspect]
     Active Substance: PREDNISONE
     Route: 065
  122. PREDNISONE [Suspect]
     Active Substance: PREDNISONE
     Dosage: ONCE A DAY
     Route: 048
  123. PREDNISONE [Suspect]
     Active Substance: PREDNISONE
     Dosage: EVERY 1 DAY
     Route: 048
  124. PREDNISONE [Suspect]
     Active Substance: PREDNISONE
     Dosage: 2 EVERY ONE DAYS
     Route: 048
  125. PREDNISONE [Suspect]
     Active Substance: PREDNISONE
     Route: 048
  126. PREDNISONE [Suspect]
     Active Substance: PREDNISONE
     Dosage: ONCE A DAY, 2 TIMES
     Route: 048
  127. PREDNISONE [Suspect]
     Active Substance: PREDNISONE
     Dosage: 2 EVERY 1 DAY
     Route: 048
  128. PREDNISONE [Suspect]
     Active Substance: PREDNISONE
     Dosage: 1 EVERY 1 DAY
     Route: 048
  129. SULFASALAZINE [Suspect]
     Active Substance: SULFASALAZINE
     Indication: Juvenile idiopathic arthritis
     Dosage: ONCE A DAY
     Route: 048
  130. SULFASALAZINE [Suspect]
     Active Substance: SULFASALAZINE
     Indication: Rheumatoid arthritis
     Dosage: EVERY 1 DAY
     Route: 048
  131. SULFASALAZINE [Suspect]
     Active Substance: SULFASALAZINE
     Dosage: 1 EVERY 1 DAY
     Route: 065
  132. HYDROXYCHLOROQUINE [Suspect]
     Active Substance: HYDROXYCHLOROQUINE
     Indication: Juvenile idiopathic arthritis
     Dosage: ONCE A DAY
     Route: 048
  133. HYDROXYCHLOROQUINE [Suspect]
     Active Substance: HYDROXYCHLOROQUINE
     Indication: Rheumatoid arthritis
     Dosage: ONCE A DAY
     Route: 048
  134. HYDROXYCHLOROQUINE [Suspect]
     Active Substance: HYDROXYCHLOROQUINE
     Dosage: ONCE A DAY
     Route: 048
  135. HYDROXYCHLOROQUINE [Suspect]
     Active Substance: HYDROXYCHLOROQUINE
     Dosage: ONCE A DAY
     Route: 048
  136. PREDNISONE [Suspect]
     Active Substance: PREDNISONE
     Indication: Juvenile idiopathic arthritis
     Dosage: ONCE A WEEK
     Route: 048
  137. PREDNISONE [Suspect]
     Active Substance: PREDNISONE
     Indication: Rheumatoid arthritis
     Dosage: ONCE A WEEK, TWICE
     Route: 048
  138. PREDNISONE [Suspect]
     Active Substance: PREDNISONE
     Dosage: ONCE A DAY, TWICE
     Route: 048
  139. PREDNISONE [Suspect]
     Active Substance: PREDNISONE
     Dosage: ONCE A DAY, TWICE
     Route: 048
  140. PREDNISONE [Suspect]
     Active Substance: PREDNISONE
     Dosage: 1.3 MG ONCE A DAY, TWICE
     Route: 048
  141. PREDNISONE [Suspect]
     Active Substance: PREDNISONE
     Dosage: 2 EVERY 1 DAY
     Route: 048
  142. PREDNISONE [Suspect]
     Active Substance: PREDNISONE
     Dosage: 2 EVERY 1 DAY
     Route: 048
  143. PREDNISONE [Suspect]
     Active Substance: PREDNISONE
     Dosage: 1 EVERY 1 DAY
     Route: 048
  144. PREDNISONE [Suspect]
     Active Substance: PREDNISONE
     Dosage: 2 EVERY 1 DAY
     Route: 048
  145. TOCILIZUMAB [Suspect]
     Active Substance: TOCILIZUMAB
     Indication: Juvenile idiopathic arthritis
     Dosage: TWICE A DAY
     Route: 042
  146. TOCILIZUMAB [Suspect]
     Active Substance: TOCILIZUMAB
     Indication: Rheumatoid arthritis
     Dosage: ONCE A WEEK, TWICE
     Route: 042
  147. TOCILIZUMAB [Suspect]
     Active Substance: TOCILIZUMAB
     Route: 042
  148. TOCILIZUMAB [Suspect]
     Active Substance: TOCILIZUMAB
     Dosage: CYCLICAL
     Route: 042
  149. TOCILIZUMAB [Suspect]
     Active Substance: TOCILIZUMAB
     Dosage: 2 EVERY 1 WEEK
     Route: 041
  150. TOCILIZUMAB [Suspect]
     Active Substance: TOCILIZUMAB
     Route: 041
  151. ETANERCEPT [Suspect]
     Active Substance: ETANERCEPT
     Indication: Rheumatoid arthritis
     Dosage: 12.5 MG ONCE A WEEK
  152. ETANERCEPT [Suspect]
     Active Substance: ETANERCEPT
     Indication: Juvenile idiopathic arthritis
     Dosage: TWICE A WEEK
  153. NAPROXEN [Suspect]
     Active Substance: NAPROXEN
     Indication: Juvenile idiopathic arthritis
     Route: 065
  154. PREDNISONE [Suspect]
     Active Substance: PREDNISONE
     Indication: Juvenile idiopathic arthritis
     Dosage: ONCE A DAY, 2 TIMES
     Route: 048
  155. PREDNISONE [Suspect]
     Active Substance: PREDNISONE
     Dosage: TWICE A DAY
     Route: 048
  156. ERELZI [Suspect]
     Active Substance: ETANERCEPT-SZZS
     Indication: Rheumatoid arthritis
     Dosage: ONCE A WEEK
     Route: 058
  157. ERELZI [Suspect]
     Active Substance: ETANERCEPT-SZZS
     Indication: Product used for unknown indication
     Dosage: 2 TIMES IN ONCE A WEEK
     Route: 058
  158. ERELZI [Suspect]
     Active Substance: ETANERCEPT-SZZS
     Indication: Juvenile idiopathic arthritis
     Route: 059
  159. ERELZI [Suspect]
     Active Substance: ETANERCEPT-SZZS
     Route: 058
  160. GAMASTAN [Suspect]
     Active Substance: HUMAN IMMUNOGLOBULIN G
     Indication: Product used for unknown indication
  161. GAMASTAN [Suspect]
     Active Substance: HUMAN IMMUNOGLOBULIN G
     Indication: Juvenile idiopathic arthritis
     Route: 030
  162. GAMASTAN [Suspect]
     Active Substance: HUMAN IMMUNOGLOBULIN G
     Indication: Rheumatoid arthritis
     Route: 030
  163. HUMAN IMMUNOGLOBULIN G [Suspect]
     Active Substance: HUMAN IMMUNOGLOBULIN G
     Indication: Rheumatoid arthritis
  164. HUMAN IMMUNOGLOBULIN G [Suspect]
     Active Substance: HUMAN IMMUNOGLOBULIN G
     Indication: Off label use
     Route: 042
  165. HUMAN IMMUNOGLOBULIN G [Suspect]
     Active Substance: HUMAN IMMUNOGLOBULIN G
     Indication: Juvenile idiopathic arthritis
     Route: 065
  166. HUMAN IMMUNOGLOBULIN G [Suspect]
     Active Substance: HUMAN IMMUNOGLOBULIN G
     Route: 042
  167. HUMAN IMMUNOGLOBULIN G [Suspect]
     Active Substance: HUMAN IMMUNOGLOBULIN G
     Dosage: ONCE A WEEK
     Route: 042
  168. TRIAMCINOLONE ACETONIDE [Suspect]
     Active Substance: TRIAMCINOLONE ACETONIDE
     Indication: Juvenile idiopathic arthritis
     Dosage: 1 EVERY 1 DAY
     Route: 048
  169. TRIAMCINOLONE ACETONIDE [Suspect]
     Active Substance: TRIAMCINOLONE ACETONIDE
     Indication: Rheumatoid arthritis
     Dosage: ITRAARTICULAR
     Route: 065
  170. TRIAMCINOLONE ACETONIDE [Suspect]
     Active Substance: TRIAMCINOLONE ACETONIDE
     Indication: Seasonal allergy
  171. TRIAMCINOLONE ACETONIDE [Suspect]
     Active Substance: TRIAMCINOLONE ACETONIDE
     Indication: Rhinitis allergic
     Route: 014
  172. TRIAMCINOLONE ACETONIDE [Suspect]
     Active Substance: TRIAMCINOLONE ACETONIDE
     Route: 050
  173. TETANUS IMMUNE GLOBULIN (HUMAN) [Suspect]
     Active Substance: HUMAN CLOSTRIDIUM TETANI TOXOID IMMUNE GLOBULIN
     Indication: Juvenile idiopathic arthritis
     Dosage: ONCE A WEEK
  174. XELJANZ XR [Suspect]
     Active Substance: TOFACITINIB CITRATE
     Indication: Rheumatoid arthritis
     Dosage: 1 EVERY 1 DAY
     Route: 065
  175. XELJANZ XR [Suspect]
     Active Substance: TOFACITINIB CITRATE
     Indication: Product used for unknown indication
     Route: 065
  176. TRIAMCINOLONE HEXACETONIDE [Suspect]
     Active Substance: TRIAMCINOLONE HEXACETONIDE
     Indication: Juvenile idiopathic arthritis
     Dosage: THERAPY DURATION -31.0
     Route: 065
  177. HYRIMOZ [Suspect]
     Active Substance: ADALIMUMAB-ADAZ
     Indication: Juvenile idiopathic arthritis
     Route: 065
  178. HYRIMOZ [Suspect]
     Active Substance: ADALIMUMAB-ADAZ
     Indication: Rheumatoid arthritis
  179. TRIAMCINOLONE [Suspect]
     Active Substance: TRIAMCINOLONE
     Indication: Juvenile idiopathic arthritis
     Route: 065
  180. XELJANZ [Suspect]
     Active Substance: TOFACITINIB CITRATE
     Indication: Product used for unknown indication
     Route: 065
  181. TRIAMCINOLONE [Concomitant]
     Active Substance: TRIAMCINOLONE
     Indication: Juvenile idiopathic arthritis
     Dosage: TWICE A WEEK
     Route: 014
  182. TRIAMCINOLONE [Concomitant]
     Active Substance: TRIAMCINOLONE
     Indication: Rheumatoid arthritis
  183. TRIAMCINOLONE [Concomitant]
     Active Substance: TRIAMCINOLONE
     Indication: Seasonal allergy
     Route: 065
  184. TRIAMCINOLONE [Concomitant]
     Active Substance: TRIAMCINOLONE
     Indication: Rhinitis allergic
     Route: 050
  185. TRIAMCINOLONE [Concomitant]
     Active Substance: TRIAMCINOLONE
     Dosage: CYCLICAL
     Route: 058
  186. TRIAMCINOLONE HEXACETONIDE [Concomitant]
     Active Substance: TRIAMCINOLONE HEXACETONIDE
     Indication: Juvenile idiopathic arthritis
     Dosage: 1 EVERY 1 DAY
     Route: 065
  187. TRIAMCINOLONE HEXACETONIDE [Concomitant]
     Active Substance: TRIAMCINOLONE HEXACETONIDE
  188. TRIAMCINOLONE ACETONIDE [Concomitant]
     Active Substance: TRIAMCINOLONE ACETONIDE
     Indication: Juvenile idiopathic arthritis
  189. TRIAMCINOLONE ACETONIDE [Concomitant]
     Active Substance: TRIAMCINOLONE ACETONIDE
     Indication: Seasonal allergy
  190. TRIAMCINOLONE ACETONIDE [Concomitant]
     Active Substance: TRIAMCINOLONE ACETONIDE
     Indication: Rhinitis allergic
     Dosage: ONCE A DAY
  191. TRIAMCINOLONE ACETONIDE [Concomitant]
     Active Substance: TRIAMCINOLONE ACETONIDE
     Indication: Rheumatoid arthritis
  192. FOLIC ACID [Concomitant]
     Active Substance: FOLIC ACID
     Indication: Product used for unknown indication
     Route: 065

REACTIONS (58)
  - Arthropathy [Not Recovered/Not Resolved]
  - Dizziness [Not Recovered/Not Resolved]
  - Drug specific antibody [Not Recovered/Not Resolved]
  - Mobility decreased [Not Recovered/Not Resolved]
  - Nausea [Not Recovered/Not Resolved]
  - Wheelchair user [Not Recovered/Not Resolved]
  - Joint effusion [Not Recovered/Not Resolved]
  - Joint injury [Not Recovered/Not Resolved]
  - Quality of life decreased [Not Recovered/Not Resolved]
  - Arthralgia [Not Recovered/Not Resolved]
  - Human anti-human antibody test [Not Recovered/Not Resolved]
  - Hypocalcaemia [Not Recovered/Not Resolved]
  - Hypokalaemia [Not Recovered/Not Resolved]
  - Hypotension [Not Recovered/Not Resolved]
  - Immunodeficiency [Not Recovered/Not Resolved]
  - Impaired quality of life [Not Recovered/Not Resolved]
  - Joint destruction [Not Recovered/Not Resolved]
  - Loss of consciousness [Not Recovered/Not Resolved]
  - Pleural effusion [Not Recovered/Not Resolved]
  - Pyrexia [Not Recovered/Not Resolved]
  - Rheumatoid arthritis [Not Recovered/Not Resolved]
  - Bone density decreased [Unknown]
  - Bone density increased [Not Recovered/Not Resolved]
  - Red blood cell sedimentation rate abnormal [Not Recovered/Not Resolved]
  - Drug specific antibody present [Not Recovered/Not Resolved]
  - Liver function test abnormal [Not Recovered/Not Resolved]
  - Gastroenteritis viral [Not Recovered/Not Resolved]
  - Poor venous access [Not Recovered/Not Resolved]
  - C-reactive protein abnormal [Not Recovered/Not Resolved]
  - Short stature [Not Recovered/Not Resolved]
  - Product use in unapproved indication [Not Recovered/Not Resolved]
  - Intentional product use issue [Not Recovered/Not Resolved]
  - Contraindicated product administered [Not Recovered/Not Resolved]
  - Prescribed underdose [Not Recovered/Not Resolved]
  - Therapeutic product effect decreased [Not Recovered/Not Resolved]
  - Therapy non-responder [Not Recovered/Not Resolved]
  - Product use issue [Not Recovered/Not Resolved]
  - Adrenal insufficiency [Unknown]
  - Juvenile idiopathic arthritis [Unknown]
  - Polyarthritis [Unknown]
  - Antibody test positive [Unknown]
  - Arthritis [Unknown]
  - Body height below normal [Unknown]
  - C-reactive protein increased [Unknown]
  - Condition aggravated [Unknown]
  - Diarrhoea [Unknown]
  - Human antichimeric antibody positive [Unknown]
  - Obesity [Unknown]
  - Psoriasis [Unknown]
  - Red blood cell sedimentation rate increased [Unknown]
  - Synovitis [Unknown]
  - Vomiting [Unknown]
  - Loss of personal independence in daily activities [Unknown]
  - Septic shock [Unknown]
  - Drug intolerance [Unknown]
  - Underdose [Unknown]
  - Drug ineffective [Unknown]
  - Off label use [Unknown]
